FAERS Safety Report 8778265 (Version 1)
Quarter: 2012Q4

REPORT INFORMATION
  Report Type: 
  Country: US (occurrence: US)
  Receive Date: 20120912
  Receipt Date: 20120912
  Transmission Date: 20130627
  Serious: No
  Sender: FDA-Public Use
  Company Number: US-ASTRAZENECA-2012SE60044

PATIENT
  Age: 67 Year
  Sex: Female
  Weight: 112.9 kg

DRUGS (14)
  1. CRESTOR [Suspect]
     Route: 048
  2. METOPROLOL TARTRATE [Suspect]
     Route: 048
  3. TRAMADOL HCL [Concomitant]
     Dosage: 1-2 TABLE THREE TIMES DAILY AS NEEDED
     Route: 048
  4. BUPROPION HCL [Concomitant]
     Route: 048
  5. LANTUS SOLOSTAR [Concomitant]
     Dosage: 100 UNIT/ML, 80 UNITS AT BEDTIME
     Route: 058
  6. AVAPRO [Concomitant]
     Route: 048
  7. ISOSORBIDE MONONITRATE [Concomitant]
     Route: 048
  8. SAVELLA [Concomitant]
     Route: 048
  9. NYSTATIN [Concomitant]
     Dosage: 100000 UNIT/GM TWO OINTMENT EXTERNAL TWICE DAILY
  10. PLAVIX [Concomitant]
     Route: 048
  11. JANUVIA [Concomitant]
     Route: 048
  12. PANTOPRAZOLE SODIUM [Concomitant]
     Route: 048
  13. CLOTRIMAZOLE-BETAMETHASONE [Concomitant]
     Dosage: 1-0.05% TWO TIMES DAILY AS NEEDED
  14. ASPIRIN [Concomitant]
     Route: 048

REACTIONS (15)
  - Type 2 diabetes mellitus [Unknown]
  - Osteoarthritis [Unknown]
  - Vitamin D deficiency [Unknown]
  - Rhinitis allergic [Unknown]
  - Diabetic neuropathy [Unknown]
  - Gastrooesophageal reflux disease [Unknown]
  - Hypertension [Unknown]
  - Type V hyperlipidaemia [Unknown]
  - Swelling [Unknown]
  - Mass [Unknown]
  - Myalgia [Unknown]
  - Myositis [Unknown]
  - Arteriosclerosis coronary artery [Unknown]
  - Major depression [Unknown]
  - Enzyme abnormality [Unknown]
